FAERS Safety Report 12773982 (Version 1)
Quarter: 2016Q3

REPORT INFORMATION
  Report Type: Spontaneous
  Country: GB (occurrence: GB)
  Receive Date: 20160923
  Receipt Date: 20160923
  Transmission Date: 20161109
  Serious: Yes (Other)
  Sender: FDA-Public Use
  Company Number: GB-ACCORD-044215

PATIENT
  Age: 41 Year
  Sex: Male
  Weight: 73.47 kg

DRUGS (2)
  1. VALERIAN ROOT DRY EXTRACT [Concomitant]
  2. AMITRIPTYLINE [Suspect]
     Active Substance: AMITRIPTYLINE
     Indication: PAIN
     Route: 048
     Dates: start: 20160819, end: 20160821

REACTIONS (3)
  - Panic disorder [Recovered/Resolved with Sequelae]
  - Off label use [Unknown]
  - Muscle spasms [Recovered/Resolved with Sequelae]

NARRATIVE: CASE EVENT DATE: 20160819
